FAERS Safety Report 23451691 (Version 2)
Quarter: 2024Q2

REPORT INFORMATION
  Report Type: Spontaneous
  Country: US (occurrence: US)
  Receive Date: 20240129
  Receipt Date: 20240423
  Transmission Date: 20240716
  Serious: No
  Sender: FDA-Public Use
  Company Number: US-SA-SAC20240122000488

PATIENT
  Age: 18 Year
  Sex: Male
  Weight: 66.17 kg

DRUGS (1)
  1. DUPIXENT [Suspect]
     Active Substance: DUPILUMAB
     Indication: Eosinophilic oesophagitis
     Dosage: 300 MG, QW
     Route: 058
     Dates: start: 20230810

REACTIONS (3)
  - Injection site swelling [Recovering/Resolving]
  - Retching [Unknown]
  - Injection site pain [Unknown]

NARRATIVE: CASE EVENT DATE: 20240117
